FAERS Safety Report 24816935 (Version 1)
Quarter: 2025Q1

REPORT INFORMATION
  Report Type: Spontaneous
  Country: US (occurrence: US)
  Receive Date: 20250108
  Receipt Date: 20250108
  Transmission Date: 20250409
  Serious: Yes (Other)
  Sender: PFIZER
  Company Number: US-PFIZER INC-PV202400170500

PATIENT
  Age: 63 Year
  Sex: Male

DRUGS (3)
  1. XELJANZ XR [Suspect]
     Active Substance: TOFACITINIB CITRATE
     Indication: Rheumatoid arthritis
     Dosage: 11 MG, 1X/DAY
     Route: 048
     Dates: start: 202410, end: 20241228
  2. XELJANZ XR [Suspect]
     Active Substance: TOFACITINIB CITRATE
     Indication: Psoriasis
  3. METHOTREXATE SODIUM [Suspect]
     Active Substance: METHOTREXATE SODIUM

REACTIONS (5)
  - Melaena [Recovered/Resolved]
  - Diarrhoea [Unknown]
  - Abdominal pain [Unknown]
  - Abdominal discomfort [Not Recovered/Not Resolved]
  - Fatigue [Recovered/Resolved]

NARRATIVE: CASE EVENT DATE: 20240101
